FAERS Safety Report 10177379 (Version 1)
Quarter: 2014Q2

REPORT INFORMATION
  Report Type: Spontaneous
  Country: US (occurrence: US)
  Receive Date: 20140516
  Receipt Date: 20140516
  Transmission Date: 20141212
  Serious: No
  Sender: FDA-Public Use
  Company Number: US-PFIZER INC-2014135034

PATIENT
  Sex: Female

DRUGS (8)
  1. XANAX [Suspect]
     Dosage: UNK
  2. NORVASC [Suspect]
     Dosage: UNK
  3. TEGRETOL [Suspect]
     Dosage: UNK
  4. KLONOPIN [Suspect]
     Dosage: UNK
  5. RISPERDAL [Suspect]
     Dosage: UNK
  6. LAMICTAL [Suspect]
     Dosage: UNK
  7. LITHIUM [Suspect]
     Dosage: UNK
  8. NIASPAN [Suspect]
     Dosage: UNK

REACTIONS (1)
  - Drug hypersensitivity [Unknown]
